FAERS Safety Report 7184595-3 (Version None)
Quarter: 2010Q4

REPORT INFORMATION
  Report Type: 
  Country: None (occurrence: None)
  Receive Date: 20101222
  Receipt Date: 20101217
  Transmission Date: 20110411
  Serious: Yes (Hospitalization, Other)
  Sender: FDA-Public Use
  Company Number: AT-ELI_LILLY_AND_COMPANY-AT201009001250

PATIENT
  Age: 72 Year
  Sex: Female
  Weight: 58 kg

DRUGS (21)
  1. GEMCITABINE HCL [Suspect]
     Indication: BREAST CANCER METASTATIC
     Dosage: 1000 MG/M2, D1 AND D8 EVERY 21 DAYS
     Route: 042
     Dates: start: 20100702
  2. GEMCITABINE HCL [Suspect]
     Dosage: 750 MG/M2, UNKNOWN
     Route: 042
     Dates: start: 20100820
  3. VINFLUNINE [Suspect]
     Indication: BREAST CANCER METASTATIC
     Dosage: 320 MG/M2, DAY 1
     Route: 042
     Dates: start: 20100702
  4. VINFLUNINE [Suspect]
     Dosage: 280 MG/M2, UNKNOWN
     Route: 042
     Dates: start: 20100813
  5. HYDAL [Concomitant]
  6. HALCION [Concomitant]
  7. CIPRALEX [Concomitant]
  8. NEXIUM [Concomitant]
  9. AMLODIPINE [Concomitant]
  10. FRAGMIN [Concomitant]
     Indication: PULMONARY EMBOLISM
  11. FORTECORTIN [Concomitant]
     Indication: ANTIEMETIC SUPPORTIVE CARE
     Route: 042
     Dates: start: 20100802, end: 20100820
  12. FORTECORTIN [Concomitant]
     Dosage: UNK, UNK
     Dates: end: 20100904
  13. PASPERTIN [Concomitant]
     Indication: ANTIEMETIC SUPPORTIVE CARE
     Dosage: UNK, UNK
     Dates: start: 20100813, end: 20100814
  14. PASPERTIN [Concomitant]
     Dates: end: 20100829
  15. DURAMOX [Concomitant]
  16. ZOFRAN [Concomitant]
     Indication: NAUSEA
     Route: 042
     Dates: start: 20100820, end: 20100820
  17. NOVALGIN [Concomitant]
     Indication: ABDOMINAL PAIN
     Dates: start: 20100813
  18. BUSCOPAN [Concomitant]
     Indication: ABDOMINAL PAIN
     Dates: start: 20100813
  19. ZOMETA [Concomitant]
     Indication: METASTASES TO BONE
     Route: 042
  20. PSYCHOPAX [Concomitant]
     Indication: INSOMNIA
     Dates: start: 20100903, end: 20100904
  21. LASIX [Concomitant]
     Indication: OEDEMA
     Dates: end: 20100829

REACTIONS (3)
  - ANAEMIA [None]
  - BLOOD BILIRUBIN INCREASED [None]
  - LUNG INFILTRATION [None]
